FAERS Safety Report 8126609 (Version 2)
Quarter: 2013Q1

REPORT INFORMATION
  Report Type: Spontaneous
  Country: US (occurrence: US)
  Receive Date: 20110908
  Receipt Date: 20130214
  Transmission Date: 20140127
  Serious: Yes (Hospitalization)
  Sender: FDA-Public Use
  Company Number: US-GLAXOSMITHKLINE-A0897022A

PATIENT
  Age: 67 Year
  Sex: Male

DRUGS (1)
  1. AVANDARYL [Suspect]
     Indication: TYPE 2 DIABETES MELLITUS
     Route: 048
     Dates: start: 20070205, end: 20070512

REACTIONS (3)
  - Myocardial infarction [Not Recovered/Not Resolved]
  - Cardiovascular disorder [Unknown]
  - Arteriosclerosis [Unknown]
